FAERS Safety Report 25804428 (Version 1)
Quarter: 2025Q3

REPORT INFORMATION
  Report Type: Spontaneous
  Country: US (occurrence: US)
  Receive Date: 20250915
  Receipt Date: 20250915
  Transmission Date: 20251021
  Serious: Yes (Congenital Anomaly, Other)
  Sender: CSL BEHRING
  Company Number: US-BEH-2025218370

PATIENT
  Sex: Male

DRUGS (1)
  1. HUMAN IMMUNOGLOBULIN G [Suspect]
     Active Substance: HUMAN IMMUNOGLOBULIN G
     Route: 064

REACTIONS (7)
  - Gene mutation [Unknown]
  - Bradycardia foetal [Unknown]
  - Foetal arrhythmia [Unknown]
  - Atrioventricular block complete [Unknown]
  - Cardiac output decreased [Unknown]
  - Bundle branch block left [Unknown]
  - Foetal exposure during pregnancy [Unknown]
